FAERS Safety Report 4485954-X (Version None)
Quarter: 2004Q3

REPORT INFORMATION
  Report Type: 
  Country: None (occurrence: None)
  Receive Date: 20040921
  Receipt Date: 20040326
  Transmission Date: 20050211
  Serious: Yes (Death)
  Sender: FDA-Public Use
  Company Number: 163-20785-04030726

PATIENT
  Age: 66 Year
  Sex: Male

DRUGS (2)
  1. THALOMID [Suspect]
     Indication: BRONCHIAL CARCINOMA
     Dosage: 200 MG, DIALY, ORAL
     Route: 048
     Dates: start: 20030923, end: 20030101
  2. THALOMID [Suspect]
     Indication: LUNG NEOPLASM MALIGNANT
     Dosage: 200 MG, DIALY, ORAL
     Route: 048
     Dates: start: 20030923, end: 20030101

REACTIONS (1)
  - DEATH [None]
